FAERS Safety Report 7933293-4 (Version None)
Quarter: 2011Q4

REPORT INFORMATION
  Report Type: 
  Country: None (occurrence: None)
  Receive Date: 20111122
  Receipt Date: 20111114
  Transmission Date: 20120403
  Serious: Yes (Hospitalization)
  Sender: FDA-Public Use
  Company Number: PHHY2011UA101588

PATIENT
  Sex: Female

DRUGS (4)
  1. CLEMASTINE FUMARATE [Concomitant]
  2. DIMEDROL [Concomitant]
  3. CARBOPLATIN [Suspect]
     Indication: OVARIAN CANCER
     Dosage: 86 MG/ML, UNK
     Route: 042
     Dates: end: 20100603
  4. DEXAMETHASONE [Concomitant]
     Dosage: 20 MG, UNK
     Route: 042

REACTIONS (3)
  - DYSPNOEA [None]
  - TACHYCARDIA [None]
  - ERYTHEMA [None]
